FAERS Safety Report 6615296-5 (Version None)
Quarter: 2010Q1

REPORT INFORMATION
  Report Type: 
  Country: None (occurrence: None)
  Receive Date: 20100226
  Receipt Date: 20100215
  Transmission Date: 20100710
  Serious: Yes (Life-Threatening, Hospitalization, Other)
  Sender: FDA-Public Use
  Company Number: 230013M09FRA

PATIENT
  Age: 28 Year
  Sex: Female
  Weight: 85 kg

DRUGS (4)
  1. REBIF [Suspect]
     Indication: RELAPSING-REMITTING MULTIPLE SCLEROSIS
     Dosage: SEE IMAGE
     Route: 058
     Dates: start: 20050501, end: 20060601
  2. REBIF [Suspect]
     Indication: RELAPSING-REMITTING MULTIPLE SCLEROSIS
     Dosage: SEE IMAGE
     Route: 058
     Dates: start: 20060601, end: 20070401
  3. REBIF [Suspect]
     Indication: RELAPSING-REMITTING MULTIPLE SCLEROSIS
     Dosage: SEE IMAGE
     Route: 058
     Dates: start: 20080501, end: 20081203
  4. CONTRACEPTIVE TREATMENT (CONTRACEPTIVES NOS) [Concomitant]

REACTIONS (5)
  - AUTOIMMUNE HEPATITIS [None]
  - CYTOMEGALOVIRUS INFECTION [None]
  - DRUG EXPOSURE DURING PREGNANCY [None]
  - MULTIPLE SCLEROSIS RELAPSE [None]
  - OPTIC NEURITIS [None]
